FAERS Safety Report 10158472 (Version 1)
Quarter: 2014Q2

REPORT INFORMATION
  Report Type: Spontaneous
  Country: US (occurrence: US)
  Receive Date: 20140507
  Receipt Date: 20140507
  Transmission Date: 20141212
  Serious: No
  Sender: FDA-Public Use
  Company Number: US-AMGEN INC.-USASP2014018412

PATIENT
  Age: 79 Year
  Sex: Male

DRUGS (1)
  1. ARANESP [Suspect]
     Indication: PRODUCT USED FOR UNKNOWN INDICATION
     Dosage: UNK
     Route: 065
     Dates: start: 201311

REACTIONS (6)
  - Serum ferritin increased [Unknown]
  - Iron binding capacity total abnormal [Unknown]
  - Haemoglobin abnormal [Not Recovered/Not Resolved]
  - Blood erythropoietin increased [Unknown]
  - Red blood cell count abnormal [Unknown]
  - Haematocrit abnormal [Not Recovered/Not Resolved]
